FAERS Safety Report 13450982 (Version 1)
Quarter: 2017Q2

REPORT INFORMATION
  Report Type: Spontaneous
  Country: US (occurrence: US)
  Receive Date: 20170417
  Receipt Date: 20170417
  Transmission Date: 20170830
  Serious: Yes (Hospitalization)
  Sender: FDA-Public Use
  Company Number: None

PATIENT
  Age: 77 Year
  Sex: Male
  Weight: 112 kg

DRUGS (13)
  1. METOPROLOL. [Concomitant]
     Active Substance: METOPROLOL
  2. PROMETHAZINE [Concomitant]
     Active Substance: PROMETHAZINE\PROMETHAZINE HYDROCHLORIDE
  3. CARFILZOMIB [Suspect]
     Active Substance: CARFILZOMIB
     Indication: PROSTATE CANCER METASTATIC
     Dosage: ?          OTHER FREQUENCY:D1D2,D8,D9,D15,D16;?
     Route: 041
     Dates: start: 20170322, end: 20170413
  4. DETROL LA [Concomitant]
     Active Substance: TOLTERODINE TARTRATE
  5. XGEVA [Concomitant]
     Active Substance: DENOSUMAB
  6. MARINOL [Concomitant]
     Active Substance: DRONABINOL
  7. TRAMADOL. [Concomitant]
     Active Substance: TRAMADOL
  8. ACYCLOVIR. [Concomitant]
     Active Substance: ACYCLOVIR
  9. HUMALOG MIX75/25 [Concomitant]
     Active Substance: INSULIN LISPRO
  10. LEUPROLIDE [Concomitant]
     Active Substance: LEUPROLIDE
  11. LEVEMIR [Concomitant]
     Active Substance: INSULIN DETEMIR
  12. ASPIRIN. [Concomitant]
     Active Substance: ASPIRIN
  13. OMEPRAZOLE. [Concomitant]
     Active Substance: OMEPRAZOLE

REACTIONS (2)
  - Weight increased [None]
  - Blood pressure increased [None]

NARRATIVE: CASE EVENT DATE: 20170415
